FAERS Safety Report 9970018 (Version 1)
Quarter: 2014Q1

REPORT INFORMATION
  Report Type: Spontaneous
  Country: JP (occurrence: JP)
  Receive Date: 20140306
  Receipt Date: 20140306
  Transmission Date: 20141002
  Serious: Yes (Death)
  Sender: FDA-Public Use
  Company Number: JP-TEVA-467139ISR

PATIENT
  Age: 72 Year
  Sex: Female

DRUGS (4)
  1. CISPLATIN [Suspect]
     Indication: CERVIX CARCINOMA
     Dosage: CUMULATIVE DOSE:963MG/BODY
  2. PACLITAXEL [Suspect]
     Indication: CERVIX CARCINOMA
     Dosage: 2400 MG/BODY (CUMULATIVE DOSE)
  3. CARBOPLATIN [Suspect]
     Indication: CERVIX CARCINOMA
     Dosage: 5900 MG/BODY(CUMULATIVE DOSE)
  4. CAMPTOTHECIN [Suspect]
     Indication: CERVIX CARCINOMA
     Dosage: COMULATIVE DOSES-700MG/BODY

REACTIONS (2)
  - Second primary malignancy [Fatal]
  - Acute myeloid leukaemia [Fatal]
